FAERS Safety Report 8870868 (Version 1)
Quarter: 2012Q4

REPORT INFORMATION
  Report Type: 
  Country: US (occurrence: US)
  Receive Date: 20121026
  Receipt Date: 20121026
  Transmission Date: 20130627
  Serious: No
  Sender: FDA-Public Use
  Company Number: US-AMGEN-USASP2012046779

PATIENT
  Sex: Female
  Weight: 89.8 kg

DRUGS (11)
  1. ENBREL [Suspect]
     Indication: PRODUCT USED FOR UNKNOWN INDICATION
     Dosage: 50 mg, qwk
     Route: 058
  2. CALTRATE + D                       /00188401/ [Concomitant]
     Dosage: 600 UNK, UNK
  3. PRISTIQ [Concomitant]
  4. PLAQUENIL                          /00072602/ [Concomitant]
     Dosage: 200 mg, UNK
  5. PREDNISONE [Concomitant]
     Dosage: 1 mg, UNK
  6. TRAMADOL HCL [Concomitant]
     Dosage: 50 mg, UNK
  7. IMURAN                             /00001501/ [Concomitant]
     Dosage: 50 mg, UNK
  8. PRILOSEC                           /00661201/ [Concomitant]
     Dosage: 20 mg, UNK
  9. MELOXICAM [Concomitant]
     Dosage: 7.5 mg, UNK
  10. GAVISCON CHEWABLE [Concomitant]
     Dosage: 500 mg, UNK
  11. TYLENOL ARTHRITIS [Concomitant]
     Dosage: 650 mg, UNK

REACTIONS (2)
  - Injection site bruising [Unknown]
  - Injection site discolouration [Unknown]
